FAERS Safety Report 23738514 (Version 1)
Quarter: 2024Q2

REPORT INFORMATION
  Report Type: Spontaneous
  Country: US (occurrence: US)
  Receive Date: 20240412
  Receipt Date: 20240412
  Transmission Date: 20240716
  Serious: Yes (Disabling)
  Sender: FDA-Public Use
  Company Number: US-SABAL THERAPEUTICS LLC-2024-ATH-000009

PATIENT

DRUGS (6)
  1. OZOBAX [Suspect]
     Active Substance: BACLOFEN
     Indication: Painful erection
     Dosage: UP TO 30 MG, QD
     Route: 065
     Dates: start: 2019
  2. OZOBAX [Suspect]
     Active Substance: BACLOFEN
     Indication: Spontaneous penile erection
  3. IMIPRAMINE [Suspect]
     Active Substance: IMIPRAMINE
     Indication: Painful erection
     Dosage: 10 MG TITRATED UP TO 80 MG, QD
     Route: 065
     Dates: start: 202003
  4. IMIPRAMINE [Suspect]
     Active Substance: IMIPRAMINE
     Indication: Spontaneous penile erection
  5. CLONAZEPAM [Suspect]
     Active Substance: CLONAZEPAM
     Indication: Painful erection
     Dosage: 0.25 MG, NIGHTLY
     Route: 065
     Dates: start: 202003
  6. CLONAZEPAM [Suspect]
     Active Substance: CLONAZEPAM
     Indication: Spontaneous penile erection

REACTIONS (4)
  - Dyssomnia [Recovered/Resolved]
  - Disturbance in attention [Recovered/Resolved]
  - Somnolence [Recovered/Resolved]
  - Drug effective for unapproved indication [Unknown]

NARRATIVE: CASE EVENT DATE: 20190101
